FAERS Safety Report 6164826-9 (Version None)
Quarter: 2009Q2

REPORT INFORMATION
  Report Type: 
  Country: None (occurrence: None)
  Receive Date: 20090423
  Receipt Date: 20090420
  Transmission Date: 20091009
  Serious: Yes (Death, Other)
  Sender: FDA-Public Use
  Company Number: PHHY2009IT14887

PATIENT
  Age: 72 Year
  Sex: Male

DRUGS (3)
  1. ZOLEDRONIC ACID [Suspect]
     Indication: METASTASES TO BONE
     Dosage: MONTHLY INFUSIONS
  2. PAMIDRONATE DISODIUM [Suspect]
     Indication: METASTASES TO BONE
     Dosage: MONTHLY INFUSIONS
  3. PAMIDRONATE DISODIUM [Suspect]
     Indication: PROSTATE CANCER

REACTIONS (3)
  - JAW OPERATION [None]
  - MALIGNANT NEOPLASM PROGRESSION [None]
  - OSTEONECROSIS [None]
